FAERS Safety Report 4815118-9 (Version None)
Quarter: 2005Q4

REPORT INFORMATION
  Report Type: 
  Country: None (occurrence: None)
  Receive Date: 20051028
  Receipt Date: 20051021
  Transmission Date: 20060501
  Serious: Yes (Hospitalization)
  Sender: FDA-Public Use
  Company Number: GB-AVENTIS-200519329GDDC

PATIENT
  Age: 84 Year
  Sex: Female

DRUGS (8)
  1. GLIBENCLAMIDE [Suspect]
     Route: 048
  2. LISINOPRIL [Suspect]
  3. HYDROCHLOROTHIAZIDE [Suspect]
  4. DOXAZOSIN [Concomitant]
     Route: 048
  5. SIMVASTATIN [Concomitant]
     Route: 048
  6. ASPIRIN [Concomitant]
     Route: 048
  7. TRAVOPROST [Concomitant]
     Dosage: DOSE: NOCTE
     Route: 061
  8. CARTEOLOL HCL [Concomitant]
     Route: 061

REACTIONS (5)
  - BLOOD CREATINE PHOSPHOKINASE INCREASED [None]
  - FALL [None]
  - HYPONATRAEMIA [None]
  - RENAL FAILURE ACUTE [None]
  - RHABDOMYOLYSIS [None]
